FAERS Safety Report 8457326 (Version 2)
Quarter: 2012Q4

REPORT INFORMATION
  Report Type: 
  Country: US (occurrence: US)
  Receive Date: 20120314
  Receipt Date: 20120919
  Transmission Date: 20130627
  Serious: Yes (Hospitalization)
  Sender: FDA-Public Use
  Company Number: US-ELI_LILLY_AND_COMPANY-US201203001570

PATIENT
  Sex: Female

DRUGS (11)
  1. HUMATROPE [Suspect]
     Indication: HYPOPITUITARISM
     Dosage: UNK, unknown
  2. HUMATROPE [Suspect]
  3. HUMALOG LISPRO [Suspect]
     Indication: DIABETES MELLITUS
     Dosage: UNK UNK, prn
  4. LANTUS [Concomitant]
  5. PRILOSEC [Concomitant]
  6. EXFORGE [Concomitant]
  7. METOPROLOL [Concomitant]
  8. LEVOTHYROXINE [Concomitant]
  9. LATANOPROST [Concomitant]
  10. PRO-AIR [Concomitant]
  11. CARBIDOPA [Concomitant]

REACTIONS (3)
  - Speech disorder [Unknown]
  - Tremor [Unknown]
  - Knee operation [Unknown]
